FAERS Safety Report 17505494 (Version 1)
Quarter: 2020Q1

REPORT INFORMATION
  Report Type: Spontaneous
  Country: AU (occurrence: AU)
  Receive Date: 20200306
  Receipt Date: 20200306
  Transmission Date: 20200409
  Serious: Yes (Hospitalization)
  Sender: FDA-Public Use
  Company Number: AU-AMGEN-AUSSP2020036575

PATIENT
  Age: 41 Year
  Sex: Male
  Weight: 87 kg

DRUGS (9)
  1. ENBREL [Suspect]
     Active Substance: ETANERCEPT
     Indication: RHEUMATOID ARTHRITIS
     Dosage: 50 MILLIGRAM, QWK
     Route: 065
     Dates: start: 20200220
  2. CISPLATIN. [Suspect]
     Active Substance: CISPLATIN
     Indication: PRODUCT USED FOR UNKNOWN INDICATION
     Dosage: UNK
     Route: 065
  3. PLAQUENIL [Concomitant]
     Active Substance: HYDROXYCHLOROQUINE SULFATE
     Indication: RHEUMATOID ARTHRITIS
     Dosage: 200 MILLIGRAM, BID
     Dates: start: 201904, end: 20200220
  4. PANAFCORT [Concomitant]
     Active Substance: PREDNISONE
     Dosage: UNK
     Dates: start: 20190118
  5. SULFASALAZINE. [Suspect]
     Active Substance: SULFASALAZINE
     Indication: RHEUMATOID ARTHRITIS
     Dosage: 500 MILLIGRAM, 4X/DAY
     Route: 065
     Dates: start: 201906
  6. METHOTREXATE. [Suspect]
     Active Substance: METHOTREXATE
     Indication: RHEUMATOID ARTHRITIS
     Dosage: UNK, QWK (10 MG WEEKLY FOR 4 WEEKS, 15MG WEEKLY FOR 4 WEEKS)
     Route: 065
     Dates: start: 20190118, end: 20190318
  7. PANTOPRAZOLE [Concomitant]
     Active Substance: PANTOPRAZOLE
     Dosage: UNK
     Dates: start: 201907
  8. NAPROXEN. [Concomitant]
     Active Substance: NAPROXEN
     Dosage: UNK
     Dates: start: 20190828, end: 20191028
  9. SULFASALAZINE. [Suspect]
     Active Substance: SULFASALAZINE
     Dosage: UNK, 2X/DAY
     Route: 065

REACTIONS (6)
  - Vision blurred [Unknown]
  - Abdominal pain [Unknown]
  - Chest pain [Unknown]
  - Appetite disorder [Unknown]
  - Dizziness [Unknown]
  - Eye pain [Unknown]
